FAERS Safety Report 4631005-3 (Version None)
Quarter: 2005Q2

REPORT INFORMATION
  Report Type: 
  Country: None (occurrence: None)
  Receive Date: 20050406
  Receipt Date: 20050406
  Transmission Date: 20051028
  Serious: Yes (Life-Threatening)
  Sender: FDA-Public Use
  Company Number: None

PATIENT
  Sex: Male
  Weight: 65.7716 kg

DRUGS (13)
  1. ISOVUE-370 [Suspect]
     Indication: ANGIOGRAM
     Dosage: 145ML  ONCE INTRAVENOUS
     Route: 042
     Dates: start: 20050323, end: 20050323
  2. CLOPIDOGREL [Concomitant]
  3. ASPIRIN [Concomitant]
  4. COMBIVENT [Concomitant]
  5. FLOVENT [Concomitant]
  6. FORADIL [Concomitant]
  7. HYDROMORPHONE [Concomitant]
  8. NORMAL SALINE [Concomitant]
  9. NITROGLYCERIN [Concomitant]
  10. LIDOCAINE [Concomitant]
  11. HEPARIN [Concomitant]
  12. UNSPECIFIED FLUIDS [Concomitant]
  13. ATROPINE [Concomitant]

REACTIONS (7)
  - CARDIO-RESPIRATORY ARREST [None]
  - CONTRAST MEDIA REACTION [None]
  - HEART RATE INCREASED [None]
  - NERVOUS SYSTEM DISORDER [None]
  - PROCEDURAL COMPLICATION [None]
  - PROCEDURAL HYPOTENSION [None]
  - RESPIRATORY DISORDER [None]
